FAERS Safety Report 19230751 (Version 2)
Quarter: 2021Q3

REPORT INFORMATION
  Report Type: Spontaneous
  Country: US (occurrence: US)
  Receive Date: 20210507
  Receipt Date: 20210715
  Transmission Date: 20211014
  Serious: No
  Sender: FDA-Public Use
  Company Number: US-MYLANLABS-2021M1025368

PATIENT
  Sex: Male
  Weight: 73 kg

DRUGS (1)
  1. MUSE [Suspect]
     Active Substance: ALPROSTADIL
     Indication: PRODUCT USED FOR UNKNOWN INDICATION
     Dosage: UNK
     Route: 066
     Dates: start: 20210407

REACTIONS (3)
  - Pain [Unknown]
  - Product storage error [Unknown]
  - Wrong technique in product usage process [Unknown]
